FAERS Safety Report 15231953 (Version 1)
Quarter: 2018Q3

REPORT INFORMATION
  Report Type: Report from Study
  Country: IL (occurrence: IL)
  Receive Date: 20180802
  Receipt Date: 20180802
  Transmission Date: 20181010
  Serious: Yes (Hospitalization, Other)
  Sender: FDA-Public Use
  Company Number: IL-IPSEN BIOPHARMACEUTICALS, INC.-2018-05964

PATIENT
  Sex: Female

DRUGS (5)
  1. NORMITEN [Concomitant]
     Active Substance: ATENOLOL
     Route: 048
  2. GLUCOPHAGE RETARD [Concomitant]
     Route: 048
  3. SOMATULINE AUTOGEL 60MG [Suspect]
     Active Substance: LANREOTIDE ACETATE
     Indication: ACROMEGALY
     Dosage: 60 MG
     Route: 065
     Dates: start: 20120110
  4. CO?DIOVAN [Concomitant]
     Active Substance: HYDROCHLOROTHIAZIDE\VALSARTAN
     Dosage: 160 MG/25 MG
     Route: 048
  5. DIOVAN [Concomitant]
     Active Substance: VALSARTAN
     Route: 048

REACTIONS (7)
  - Urinary tract infection [Recovering/Resolving]
  - Inappropriate schedule of drug administration [Unknown]
  - Diabetes mellitus [Unknown]
  - Ureterolithiasis [Recovering/Resolving]
  - Hyperthyroidism [Unknown]
  - Hydronephrosis [Recovering/Resolving]
  - Nephrolithiasis [Unknown]

NARRATIVE: CASE EVENT DATE: 2018
